FAERS Safety Report 6576769-7 (Version None)
Quarter: 2010Q1

REPORT INFORMATION
  Report Type: 
  Country: None (occurrence: None)
  Receive Date: 20100210
  Receipt Date: 20100205
  Transmission Date: 20100710
  Serious: Yes (Death, Hospitalization, Other)
  Sender: FDA-Public Use
  Company Number: NL-ROCHE-680440

PATIENT
  Weight: 103 kg

DRUGS (6)
  1. CAPECITABINE [Suspect]
     Indication: GASTRIC CANCER
     Dosage: LAST DOSE PRIOR TO THE EVENT: 26 JAN 2010
     Route: 048
     Dates: start: 20091218
  2. EPIRUBICIN [Suspect]
     Indication: GASTRIC CANCER
     Dosage: LAST DOSE PRIOR TO THE EVENT: 26 JAN 2010
     Route: 042
     Dates: start: 20091218
  3. CISPLATIN [Suspect]
     Indication: GASTRIC CANCER
     Dosage: LAST DOSE PRIOR TO THE EVENT: 26 JAN 2010
     Route: 042
     Dates: start: 20091218
  4. ENALAPRIL MALEATE [Concomitant]
     Route: 048
  5. HYDROCHLOROTHIAZIDE [Concomitant]
     Route: 048
  6. OMEPRAZOL [Concomitant]
     Route: 048
     Dates: start: 20091101

REACTIONS (3)
  - CARDIAC ARREST [None]
  - DEHYDRATION [None]
  - SUDDEN DEATH [None]
